FAERS Safety Report 10804534 (Version 1)
Quarter: 2015Q1

REPORT INFORMATION
  Report Type: Report from Study
  Country: US (occurrence: US)
  Receive Date: 20150217
  Receipt Date: 20150217
  Transmission Date: 20150721
  Serious: No
  Sender: FDA-Public Use
  Company Number: US-ABBVIE-14K-163-1240901-00

PATIENT
  Age: 68 Year
  Sex: Female

DRUGS (4)
  1. UNKNOWN MEDICATION [Concomitant]
     Active Substance: UNSPECIFIED INGREDIENT
     Indication: PRODUCT USED FOR UNKNOWN INDICATION
  2. HUMIRA [Suspect]
     Active Substance: ADALIMUMAB
     Dosage: DAY 15
     Dates: start: 20131001, end: 20131001
  3. HUMIRA [Suspect]
     Active Substance: ADALIMUMAB
     Dates: start: 2013
  4. HUMIRA [Suspect]
     Active Substance: ADALIMUMAB
     Indication: CROHN^S DISEASE
     Dosage: DAY 1
     Dates: start: 20130916, end: 20130916

REACTIONS (4)
  - Insomnia [Recovering/Resolving]
  - Loose tooth [Recovered/Resolved]
  - Toothache [Recovering/Resolving]
  - Tooth infection [Recovering/Resolving]

NARRATIVE: CASE EVENT DATE: 20140517
